FAERS Safety Report 4379523-X (Version None)
Quarter: 2004Q2

REPORT INFORMATION
  Report Type: 
  Country: None (occurrence: None)
  Receive Date: 20040601
  Receipt Date: 20040412
  Transmission Date: 20050107
  Serious: No
  Sender: FDA-Public Use
  Company Number: WAES 0404USA01202

PATIENT
  Age: 71 Year
  Sex: Female

DRUGS (1)
  1. ZETIA [Suspect]
     Dosage: 60 MG/DAILY/PO
     Route: 048

REACTIONS (2)
  - FATIGUE [None]
  - PRESCRIBED OVERDOSE [None]
